FAERS Safety Report 5762820-0 (Version None)
Quarter: 2008Q2

REPORT INFORMATION
  Report Type: 
  Country: None (occurrence: None)
  Receive Date: 20080609
  Receipt Date: 20080602
  Transmission Date: 20081010
  Serious: Yes (Other)
  Sender: FDA-Public Use
  Company Number: BR-AVENTIS-200815164GDDC

PATIENT
  Sex: Male

DRUGS (1)
  1. LANTUS [Suspect]

REACTIONS (3)
  - CONDITION AGGRAVATED [None]
  - RETINOPATHY [None]
  - VISUAL ACUITY REDUCED [None]
